FAERS Safety Report 4754176-7 (Version None)
Quarter: 2005Q3

REPORT INFORMATION
  Report Type: 
  Country: None (occurrence: None)
  Receive Date: 20050826
  Receipt Date: 20041026
  Transmission Date: 20060218
  Serious: Yes (Life-Threatening, Hospitalization, Disabling, Other)
  Sender: FDA-Public Use
  Company Number: JP-ABBOTT-05P-087-0306510-00

PATIENT
  Age: 21 Year
  Sex: Female
  Weight: 39 kg

DRUGS (2)
  1. FERO GRADUMET [Suspect]
     Indication: IRON DEFICIENCY ANAEMIA
     Route: 048
     Dates: start: 20041019, end: 20041019
  2. LEVOTHYROXINE SODIUM [Concomitant]
     Indication: DRUG USE FOR UNKNOWN INDICATION
     Route: 048
     Dates: start: 19780101, end: 20041019

REACTIONS (11)
  - ANAEMIA [None]
  - BODY TEMPERATURE INCREASED [None]
  - DYSPHAGIA [None]
  - FOREIGN BODY TRAUMA [None]
  - HYPOTHYROIDISM [None]
  - ODYNOPHAGIA [None]
  - OESOPHAGEAL PERFORATION [None]
  - OESOPHAGEAL STENOSIS [None]
  - PHARYNGOLARYNGEAL PAIN [None]
  - PNEUMATOSIS [None]
  - SIDEROPENIC DYSPHAGIA [None]
